FAERS Safety Report 15360572 (Version 7)
Quarter: 2020Q1

REPORT INFORMATION
  Report Type: Report from Study
  Country: US (occurrence: US)
  Receive Date: 20180907
  Receipt Date: 20200318
  Transmission Date: 20200409
  Serious: Yes (Life-Threatening, Hospitalization, Other)
  Sender: FDA-Public Use
  Company Number: US-ROCHE-2179751

PATIENT
  Sex: Female
  Weight: 81.27 kg

DRUGS (30)
  1. CHLORHEXIDINE GLUCONATE. [Concomitant]
     Active Substance: CHLORHEXIDINE GLUCONATE
  2. MICAFUNGIN. [Concomitant]
     Active Substance: MICAFUNGIN SODIUM
  3. PREVNAR 13 [Concomitant]
     Active Substance: PNEUMOCOCCAL 13-VALENT CONJUGATE VACCINE
  4. CYCLOPHOSPHAMIDE. [Suspect]
     Active Substance: CYCLOPHOSPHAMIDE
     Indication: CHEMOTHERAPY
     Route: 042
     Dates: start: 20180727, end: 20180729
  5. CLINDAMYCIN. [Concomitant]
     Active Substance: CLINDAMYCIN
  6. LEVOTHYROXINE. [Concomitant]
     Active Substance: LEVOTHYROXINE
  7. ATOVAQUONE. [Concomitant]
     Active Substance: ATOVAQUONE
  8. GRANIX [Concomitant]
     Active Substance: TBO-FILGRASTIM
  9. ACYCLOVIR [ACICLOVIR] [Concomitant]
     Active Substance: ACYCLOVIR
  10. CYANOCOBALAMIN. [Concomitant]
     Active Substance: CYANOCOBALAMIN
  11. LEVETIRACETAM. [Concomitant]
     Active Substance: LEVETIRACETAM
  12. MICONAZOLE. [Concomitant]
     Active Substance: MICONAZOLE
  13. VFEND [Concomitant]
     Active Substance: VORICONAZOLE
  14. SULFAMETHOXAZOLE;TRIMETHOPRIM [Concomitant]
     Active Substance: SULFAMETHOXAZOLE\TRIMETHOPRIM
  15. HYDROCORTISONE. [Concomitant]
     Active Substance: HYDROCORTISONE
  16. PLATELETS [Concomitant]
     Active Substance: HUMAN PLATELET, ALLOGENIC
  17. LEVOPHED [Concomitant]
     Active Substance: NOREPINEPHRINE BITARTRATE
  18. ALLOPURINOL. [Concomitant]
     Active Substance: ALLOPURINOL
  19. CHOLECALCIFEROL [Concomitant]
     Active Substance: CHOLECALCIFEROL
  20. LORATADINE. [Concomitant]
     Active Substance: LORATADINE
  21. VALCYTE [Concomitant]
     Active Substance: VALGANCICLOVIR HYDROCHLORIDE
  22. MESNA. [Suspect]
     Active Substance: MESNA
     Indication: CYSTITIS HAEMORRHAGIC
     Route: 042
     Dates: start: 20180727, end: 20180729
  23. NEULASTA [Concomitant]
     Active Substance: PEGFILGRASTIM
  24. AXICABTAGENE CILOLEUCEL [Suspect]
     Active Substance: AXICABTAGENE CILOLEUCEL
     Indication: DIFFUSE LARGE B-CELL LYMPHOMA REFRACTORY
     Route: 042
     Dates: start: 20180801, end: 20180801
  25. FLUDARABINE [Suspect]
     Active Substance: FLUDARABINE PHOSPHATE
     Indication: CHEMOTHERAPY
     Route: 042
     Dates: start: 20180727, end: 20180729
  26. VANCOMYCIN [Concomitant]
     Active Substance: VANCOMYCIN
  27. CEFTAZIDIME. [Concomitant]
     Active Substance: CEFTAZIDIME
  28. ATEZOLIZUMAB. [Suspect]
     Active Substance: ATEZOLIZUMAB
     Indication: DIFFUSE LARGE B-CELL LYMPHOMA REFRACTORY
     Route: 042
     Dates: start: 20180802, end: 20180802
  29. FERROUS SULPHATE [FERROUS SULFATE] [Concomitant]
     Active Substance: FERROUS SULFATE
  30. MAGNESIUM OXIDE. [Concomitant]
     Active Substance: MAGNESIUM OXIDE

REACTIONS (14)
  - Haemophagocytic lymphohistiocytosis [Not Recovered/Not Resolved]
  - Hypokalaemia [Recovered/Resolved]
  - Pneumonitis [Recovered/Resolved]
  - Lymphopenia [Recovered/Resolved]
  - Hypotension [Recovered/Resolved]
  - Nausea [Recovered/Resolved]
  - Vomiting [Recovered/Resolved]
  - Diarrhoea [Recovered/Resolved]
  - Leukopenia [Recovered/Resolved]
  - Thrombocytopenia [Recovered/Resolved]
  - Cytokine release syndrome [Recovered/Resolved]
  - Swelling face [Not Recovered/Not Resolved]
  - Neutropenia [Recovered/Resolved]
  - Hypoxia [Recovered/Resolved]

NARRATIVE: CASE EVENT DATE: 20180802
